FAERS Safety Report 9557992 (Version 1)
Quarter: 2013Q3

REPORT INFORMATION
  Report Type: Spontaneous
  Country: US (occurrence: None)
  Receive Date: 20130724
  Receipt Date: 20130724
  Transmission Date: 20140515
  Serious: Yes (Other)
  Sender: FDA-Public Use
  Company Number: PHEH2013US007306

PATIENT
  Sex: Female
  Weight: 63.5 kg

DRUGS (1)
  1. GILENYA [Suspect]
     Indication: MULTIPLE SCLEROSIS
     Route: 048
     Dates: start: 20111001

REACTIONS (4)
  - Fatigue [None]
  - Muscle spasms [None]
  - Sleep disorder [None]
  - Asthenia [None]
